FAERS Safety Report 10268953 (Version 3)
Quarter: 2014Q3

REPORT INFORMATION
  Report Type: Spontaneous
  Country: JP (occurrence: JP)
  Receive Date: 20140630
  Receipt Date: 20140707
  Transmission Date: 20150326
  Serious: Yes (Hospitalization, Other)
  Sender: FDA-Public Use
  Company Number: JP-OTSUKA-JP-2014-14719

PATIENT
  Age: 80 Year
  Sex: Female

DRUGS (16)
  1. SAMSCA [Suspect]
     Active Substance: TOLVAPTAN
     Indication: CARDIAC FAILURE CHRONIC
     Dosage: 3.75 MG MILLIGRAM(S), QD
     Route: 048
     Dates: start: 20140514, end: 20140515
  2. RENIVACE [Concomitant]
     Active Substance: ENALAPRIL
     Dosage: 5 MG MILLIGRAM(S), DAILY DOSE
     Route: 048
  3. PRANLUKAST [Concomitant]
     Active Substance: PRANLUKAST
     Dosage: 450 MG MILLIGRAM(S), DAILY DOSE
     Route: 048
  4. RED BLOOD CELLS, CONCENTRATED [Concomitant]
     Active Substance: HUMAN RED BLOOD CELL
     Indication: ANAEMIA
     Dosage: 6 IU, DAILY DOSE
     Route: 041
     Dates: start: 20140510, end: 20140510
  5. FLUITRAN [Concomitant]
     Active Substance: TRICHLORMETHIAZIDE
     Dosage: 2 MG MILLIGRAM(S), DAILY DOSE
     Route: 048
  6. ZYLORIC [Concomitant]
     Active Substance: ALLOPURINOL
     Dosage: 200 MG MILLIGRAM(S), DAILY DOSE
     Route: 048
  7. PRAVASTATIN SODIUM. [Concomitant]
     Active Substance: PRAVASTATIN SODIUM
     Dosage: 10 MG MILLIGRAM(S), DAILY DOSE
     Route: 048
  8. SAMSCA [Suspect]
     Active Substance: TOLVAPTAN
     Indication: RENAL FAILURE CHRONIC
  9. DIART [Concomitant]
     Active Substance: AZOSEMIDE
     Dosage: 60 MG MILLIGRAM(S), DAILY DOSE
     Route: 048
  10. PROTECADIN [Concomitant]
     Active Substance: LAFUTIDINE
     Dosage: 10 MG MILLIGRAM(S), DAILY DOSE
     Route: 048
  11. RIVOTRIL [Suspect]
     Active Substance: CLONAZEPAM
     Indication: TREMOR
     Dosage: 0.5 MG MILLIGRAM(S), DAILY DOSE
     Route: 048
     Dates: start: 20140502
  12. MAGMITT [Concomitant]
     Active Substance: MAGNESIUM OXIDE
     Dosage: 1000 MG MILLIGRAM(S), DAILY DOSE
     Route: 048
  13. BAYASPIRIN [Concomitant]
     Active Substance: ASPIRIN
     Dosage: 100 MG MILLIGRAM(S), DAILY DOSE
     Route: 048
  14. WARFARIN K [Concomitant]
     Active Substance: WARFARIN POTASSIUM
     Dosage: 1 MG MILLIGRAM(S), DAILY DOSE
     Route: 048
  15. HEMOCURON [Suspect]
     Active Substance: TRIBENOSIDE
     Indication: HAEMORRHOIDAL HAEMORRHAGE
     Dosage: 600 MG MILLIGRAM(S), DAILY DOSE
     Route: 048
     Dates: start: 20140504, end: 20140515
  16. LASIX M [Concomitant]
     Active Substance: FUROSEMIDE
     Dosage: 40 MG MILLIGRAM(S), DAILY DOSE
     Route: 065

REACTIONS (4)
  - Enanthema [Recovered/Resolved]
  - Stevens-Johnson syndrome [Recovered/Resolved]
  - Erythema multiforme [Recovered/Resolved]
  - Conjunctivitis [Recovered/Resolved]

NARRATIVE: CASE EVENT DATE: 20140514
